FAERS Safety Report 23547632 (Version 1)
Quarter: 2024Q1

REPORT INFORMATION
  Report Type: Spontaneous
  Country: US (occurrence: US)
  Receive Date: 20240221
  Receipt Date: 20240221
  Transmission Date: 20240409
  Serious: Yes (Hospitalization, Other)
  Sender: FDA-Public Use
  Company Number: US-HIKMA PHARMACEUTICALS USA INC.-US-H14001-24-01174

PATIENT
  Age: 55 Year
  Sex: Female

DRUGS (14)
  1. LITHIUM [Suspect]
     Active Substance: LITHIUM
     Indication: Product used for unknown indication
     Dosage: UNK
     Route: 065
  2. VALBENAZINE [Suspect]
     Active Substance: VALBENAZINE
     Dosage: 120 MILLIGRAM, QD
     Route: 065
     Dates: start: 20190612, end: 20191208
  3. VALBENAZINE [Suspect]
     Active Substance: VALBENAZINE
     Dosage: 120 MILLIGRAM
     Route: 065
     Dates: start: 20230823, end: 20231022
  4. VALBENAZINE [Suspect]
     Active Substance: VALBENAZINE
     Indication: Dyskinesia
     Dosage: 40 MILLIGRAM, QD
     Route: 048
     Dates: start: 20171216, end: 20171222
  5. VALBENAZINE [Suspect]
     Active Substance: VALBENAZINE
     Dosage: 40 MILLIGRAM, QD
     Route: 048
     Dates: start: 20171227, end: 20180201
  6. VALBENAZINE [Suspect]
     Active Substance: VALBENAZINE
     Dosage: 80 MILLIGRAM, QD
     Route: 048
     Dates: start: 20211216, end: 20230626
  7. VALBENAZINE [Suspect]
     Active Substance: VALBENAZINE
     Dosage: 80 MILLIGRAM, QD
     Route: 048
     Dates: start: 20230822, end: 20230922
  8. VALBENAZINE [Suspect]
     Active Substance: VALBENAZINE
     Dosage: 80 MILLIGRAM, QD
     Route: 048
     Dates: start: 20231023
  9. VALBENAZINE [Suspect]
     Active Substance: VALBENAZINE
     Dosage: 80 MILLIGRAM
     Route: 065
     Dates: start: 20180202, end: 20190610
  10. CAPLYTA [Concomitant]
     Active Substance: LUMATEPERONE
     Indication: Product used for unknown indication
     Dosage: UNK
     Route: 065
  11. EFFEXOR [Concomitant]
     Active Substance: VENLAFAXINE HYDROCHLORIDE
     Indication: Product used for unknown indication
     Dosage: UNK
     Route: 065
  12. LAMOTRIGINE [Concomitant]
     Active Substance: LAMOTRIGINE
     Indication: Product used for unknown indication
     Dosage: UNK
     Route: 065
  13. SEROQUEL [Concomitant]
     Active Substance: QUETIAPINE FUMARATE
     Indication: Product used for unknown indication
     Dosage: UNK
     Route: 065
  14. WELLBUTRIN [Concomitant]
     Active Substance: BUPROPION HYDROCHLORIDE
     Indication: Product used for unknown indication
     Dosage: UNK
     Route: 065

REACTIONS (11)
  - Toxicity to various agents [Unknown]
  - Gait disturbance [Unknown]
  - Stress [Unknown]
  - Tooth fracture [Unknown]
  - Blister [Unknown]
  - Anxiety [Unknown]
  - Restless legs syndrome [Unknown]
  - Tongue haemorrhage [Unknown]
  - Compulsive cheek biting [Unknown]
  - Tongue biting [Unknown]
  - Dyskinesia [Unknown]
